FAERS Safety Report 23722034 (Version 1)
Quarter: 2024Q2

REPORT INFORMATION
  Report Type: Spontaneous
  Country: AT (occurrence: AT)
  Receive Date: 20240409
  Receipt Date: 20240409
  Transmission Date: 20240716
  Serious: Yes (Other)
  Sender: FDA-Public Use
  Company Number: AT-002147023-NVSC2024AT059156

PATIENT
  Age: 65 Year
  Sex: Female

DRUGS (3)
  1. LETROZOLE [Suspect]
     Active Substance: LETROZOLE
     Indication: Invasive ductal breast carcinoma
     Dosage: UNK
     Route: 065
     Dates: start: 202008
  2. DENOSUMAB [Concomitant]
     Active Substance: DENOSUMAB
     Indication: Invasive ductal breast carcinoma
     Dosage: UNK
     Route: 065
     Dates: start: 202008
  3. ABEMACICLIB [Concomitant]
     Active Substance: ABEMACICLIB
     Indication: Invasive ductal breast carcinoma
     Dosage: UNK
     Route: 065
     Dates: start: 202008

REACTIONS (12)
  - Metastases to bone marrow [Unknown]
  - Metastases to bone [Unknown]
  - Invasive ductal breast carcinoma [Unknown]
  - Malignant neoplasm progression [Unknown]
  - Nail toxicity [Unknown]
  - Anaemia [Not Recovered/Not Resolved]
  - Nausea [Recovering/Resolving]
  - Dry skin [Unknown]
  - Vomiting [Unknown]
  - Pruritus [Unknown]
  - Alopecia [Unknown]
  - Therapy partial responder [Unknown]
